FAERS Safety Report 6563825-2 (Version None)
Quarter: 2010Q1

REPORT INFORMATION
  Report Type: 
  Country: None (occurrence: None)
  Receive Date: 20100130
  Receipt Date: 20091222
  Transmission Date: 20100710
  Serious: No
  Sender: FDA-Public Use
  Company Number: US-ABBOTT-09P-163-0616650-00

PATIENT
  Sex: Female
  Weight: 72.64 kg

DRUGS (5)
  1. HUMIRA [Suspect]
     Indication: CROHN'S DISEASE
     Dates: start: 20080501
  2. FEMCON FE [Concomitant]
     Indication: CONTRACEPTION
  3. PRESTIQUE [Concomitant]
     Indication: ANXIETY
  4. LORAZEPAM [Concomitant]
     Indication: ANXIETY
  5. NASONEX [Concomitant]
     Indication: HYPERSENSITIVITY

REACTIONS (4)
  - HEADACHE [None]
  - INCREASED UPPER AIRWAY SECRETION [None]
  - SINUS HEADACHE [None]
  - UPPER RESPIRATORY TRACT INFECTION [None]
